FAERS Safety Report 5120552-6 (Version None)
Quarter: 2006Q4

REPORT INFORMATION
  Report Type: 
  Country: None (occurrence: None)
  Receive Date: 20061002
  Receipt Date: 19990120
  Transmission Date: 20070319
  Serious: Yes (Hospitalization)
  Sender: FDA-Public Use
  Company Number: S99-SWE-00148-01

PATIENT
  Age: 78 Year
  Sex: Female

DRUGS (9)
  1. CIPRAMIL (CITALOPRAM) [Suspect]
     Dosage: 60 MG QD PO
     Route: 048
     Dates: end: 19960319
  2. CARBAMAZEPINE [Suspect]
  3. DOLOXENE (DEXTROPROPXYPHENE HYDROCHLORIDE) [Concomitant]
  4. TENORMIN [Concomitant]
  5. PERSANTIN [Concomitant]
  6. PLENDIL [Concomitant]
  7. MODURETIC (AMILORIDE HCTZ) [Concomitant]
  8. SOBRIL (OXAZEPAM) [Concomitant]
  9. ACETAMINOPHEN [Concomitant]

REACTIONS (3)
  - DRUG INTERACTION [None]
  - GENERAL PHYSICAL HEALTH DETERIORATION [None]
  - HYPONATRAEMIA [None]
